FAERS Safety Report 11466647 (Version 1)
Quarter: 2015Q3

REPORT INFORMATION
  Report Type: Spontaneous
  Country: US (occurrence: US)
  Receive Date: 20150907
  Receipt Date: 20150907
  Transmission Date: 20151125
  Serious: Yes (Other)
  Sender: FDA-Public Use
  Company Number: US-SA-2015SA132085

PATIENT
  Age: 64 Year
  Sex: Female
  Weight: 93 kg

DRUGS (1)
  1. LASIX [Suspect]
     Active Substance: FUROSEMIDE
     Route: 065

REACTIONS (1)
  - Renal failure [Unknown]
